FAERS Safety Report 10314712 (Version 1)
Quarter: 2014Q3

REPORT INFORMATION
  Report Type: Spontaneous
  Country: US (occurrence: None)
  Receive Date: 20140717
  Receipt Date: 20140717
  Transmission Date: 20150326
  Serious: Yes (Other)
  Sender: FDA-Public Use
  Company Number: SYM-2014-23002

PATIENT
  Sex: Female

DRUGS (4)
  1. LYRICA [Concomitant]
     Active Substance: PREGABALIN
  2. KEPPRA (LEVETIRACETAM) (LEVETIRACETAM) [Concomitant]
  3. DIASTAT ACUDIAL [Suspect]
     Active Substance: DIAZEPAM
     Indication: GENERALISED TONIC-CLONIC SEIZURE
     Route: 054
     Dates: start: 201303
  4. KLONOPIN [Concomitant]
     Active Substance: CLONAZEPAM

REACTIONS (4)
  - Pain [None]
  - Fatigue [None]
  - Convulsion [None]
  - Rib fracture [None]

NARRATIVE: CASE EVENT DATE: 20140706
